FAERS Safety Report 6125475-1 (Version None)
Quarter: 2009Q1

REPORT INFORMATION
  Report Type: 
  Country: None (occurrence: None)
  Receive Date: 20090318
  Receipt Date: 20090316
  Transmission Date: 20090719
  Serious: Yes (Hospitalization)
  Sender: FDA-Public Use
  Company Number: GXKR2009DE03162

PATIENT
  Age: 20 Year
  Sex: Female
  Weight: 55 kg

DRUGS (6)
  1. GABAPENTIN [Suspect]
     Indication: PAIN
     Dosage: 300 MG, QID, ORAL; 300 MG, TID, ORAL; 100 MG, TID, ORAL; 300 MG, TID
     Route: 048
     Dates: start: 20081205, end: 20081216
  2. GABAPENTIN [Suspect]
     Indication: PAIN
     Dosage: 300 MG, QID, ORAL; 300 MG, TID, ORAL; 100 MG, TID, ORAL; 300 MG, TID
     Route: 048
     Dates: start: 20081102
  3. GABAPENTIN [Suspect]
     Indication: PAIN
     Dosage: 300 MG, QID, ORAL; 300 MG, TID, ORAL; 100 MG, TID, ORAL; 300 MG, TID
     Route: 048
     Dates: start: 20081217
  4. CEFADROXIL [Concomitant]
  5. PERENTEROL /GFR/ [Concomitant]
  6. (SACCHAROMYCES BOULARDII) [Concomitant]

REACTIONS (1)
  - NARCOLEPSY [None]
